FAERS Safety Report 9166683 (Version 1)
Quarter: 2013Q1

REPORT INFORMATION
  Report Type: Spontaneous
  Country: GB (occurrence: GB)
  Receive Date: 20130315
  Receipt Date: 20130315
  Transmission Date: 20140127
  Serious: Yes (Other)
  Sender: FDA-Public Use
  Company Number: GB-BAXTER-2013BAX008122

PATIENT
  Age: 71 Year
  Sex: Male

DRUGS (7)
  1. SEVOFLURANE [Suspect]
     Indication: INDUCTION OF ANAESTHESIA
     Route: 065
     Dates: start: 20120111, end: 20120111
  2. REMIFENTANIL [Suspect]
     Indication: INDUCTION OF ANAESTHESIA
     Route: 042
     Dates: start: 20120111, end: 20120111
  3. LIGNOCAINE [Suspect]
     Indication: INDUCTION OF ANAESTHESIA
     Route: 065
  4. PROPOFOL [Suspect]
     Indication: INDUCTION OF ANAESTHESIA
     Route: 065
  5. ARTHROTEC [Concomitant]
     Indication: PRODUCT USED FOR UNKNOWN INDICATION
     Route: 065
  6. CETIRIZINE [Concomitant]
     Indication: PRODUCT USED FOR UNKNOWN INDICATION
     Route: 065
  7. EZETROL [Concomitant]
     Indication: BLOOD CHOLESTEROL INCREASED
     Route: 065

REACTIONS (4)
  - Cardiac arrest [Recovered/Resolved]
  - Bradycardia [Recovered/Resolved]
  - Drug interaction [Recovered/Resolved]
  - Rash erythematous [Recovered/Resolved]
